FAERS Safety Report 25659406 (Version 4)
Quarter: 2025Q3

REPORT INFORMATION
  Report Type: Spontaneous
  Country: JP (occurrence: None)
  Receive Date: 20250808
  Receipt Date: 20250909
  Transmission Date: 20251020
  Serious: Yes (Hospitalization)
  Sender: ORION
  Company Number: JP-Orion Corporation ORION PHARMA-ENTC2025-0102

PATIENT
  Age: 68 Year
  Sex: Female

DRUGS (8)
  1. STALEVO [Suspect]
     Active Substance: CARBIDOPA\ENTACAPONE\LEVODOPA
     Indication: Parkinson^s disease
     Dosage: STRENGTH: L 100
  2. STALEVO [Suspect]
     Active Substance: CARBIDOPA\ENTACAPONE\LEVODOPA
  3. SAFINAMIDE MESYLATE [Concomitant]
     Active Substance: SAFINAMIDE MESYLATE
  4. HERBALS [Concomitant]
     Active Substance: HERBALS
  5. DIAZEPAM [Concomitant]
     Active Substance: DIAZEPAM
  6. BELSOMRA [Concomitant]
     Active Substance: SUVOREXANT
  7. PRAMIPEXOLE DIHYDROCHLORIDE [Concomitant]
     Active Substance: PRAMIPEXOLE DIHYDROCHLORIDE
  8. CARBIDOPA\LEVODOPA [Concomitant]
     Active Substance: CARBIDOPA\LEVODOPA

REACTIONS (5)
  - Decreased appetite [Unknown]
  - Restlessness [Unknown]
  - Mental disorder [Unknown]
  - Thirst decreased [Unknown]
  - Loss of personal independence in daily activities [Unknown]

NARRATIVE: CASE EVENT DATE: 20250701
